FAERS Safety Report 26018940 (Version 1)
Quarter: 2025Q4

REPORT INFORMATION
  Report Type: Other
  Country: EU (occurrence: EU)
  Receive Date: 20251110
  Receipt Date: 20251110
  Transmission Date: 20260118
  Serious: Yes (Hospitalization)
  Sender: ZYDUS PHARM
  Company Number: None

PATIENT

DRUGS (2)
  1. BISOPROLOL [Suspect]
     Active Substance: BISOPROLOL
     Indication: Cardiomyopathy
     Dosage: 2.5 MILLIGRAM DAILY
     Route: 048
     Dates: end: 20250809
  2. IVABRADINE [Suspect]
     Active Substance: IVABRADINE
     Indication: Cardiomyopathy
     Dosage: 5 MILLIGRAM DAILY
     Route: 048
     Dates: end: 20250809

REACTIONS (1)
  - Atrioventricular block complete [Recovered/Resolved]

NARRATIVE: CASE EVENT DATE: 20250809
